FAERS Safety Report 23104900 (Version 4)
Quarter: 2023Q4

REPORT INFORMATION
  Report Type: Report from Study
  Country: ZA (occurrence: ZA)
  Receive Date: 20231025
  Receipt Date: 20231114
  Transmission Date: 20240110
  Serious: Yes (Life-Threatening, Hospitalization, Other)
  Sender: FDA-Public Use
  Company Number: ZA-GILEAD-2023-0647488

PATIENT
  Age: 28 Year
  Sex: Female
  Weight: 89 kg

DRUGS (5)
  1. EMTRICITABINE\TENOFOVIR DISOPROXIL FUMARATE [Suspect]
     Active Substance: EMTRICITABINE\TENOFOVIR DISOPROXIL FUMARATE
     Indication: Prophylaxis against HIV infection
     Dosage: 200/300 MG
     Route: 048
     Dates: start: 20230518, end: 20230612
  2. EMTRICITABINE\TENOFOVIR DISOPROXIL FUMARATE [Suspect]
     Active Substance: EMTRICITABINE\TENOFOVIR DISOPROXIL FUMARATE
     Dosage: UNK
     Route: 048
     Dates: start: 20191104, end: 20191208
  3. CABOTEGRAVIR [Suspect]
     Active Substance: CABOTEGRAVIR
     Indication: Prophylaxis against HIV infection
     Dosage: 30 MG, QD
     Route: 048
     Dates: start: 20191104, end: 20191202
  4. CABOTEGRAVIR [Suspect]
     Active Substance: CABOTEGRAVIR
     Dosage: 600 MG, 2 DOSES 4 WKS APART AND Q 8WKS THEREAFTER
     Route: 030
     Dates: start: 20191209, end: 20201207
  5. CABOTEGRAVIR [Suspect]
     Active Substance: CABOTEGRAVIR
     Dosage: 600 MG, 2 DOSES 4 WEEKS APART AND EVERY 8 WEEKS THEREAFTER.
     Route: 030
     Dates: start: 20210201, end: 20230307

REACTIONS (3)
  - Pre-eclampsia [Recovered/Resolved]
  - Caesarean section [Recovered/Resolved]
  - Maternal exposure during pregnancy [Recovered/Resolved]

NARRATIVE: CASE EVENT DATE: 20230612
